FAERS Safety Report 9058541 (Version 1)
Quarter: 2013Q1

REPORT INFORMATION
  Report Type: Report from Study
  Country: CA (occurrence: CA)
  Receive Date: 20130211
  Receipt Date: 20130211
  Transmission Date: 20140127
  Serious: Yes (Other)
  Sender: FDA-Public Use
  Company Number: CA-JNJFOC-20130202380

PATIENT
  Sex: Male
  Weight: 186.3 kg

DRUGS (14)
  1. REMICADE [Suspect]
     Indication: RHEUMATOID ARTHRITIS
     Route: 042
     Dates: start: 20100308
  2. REMICADE [Suspect]
     Indication: RHEUMATOID ARTHRITIS
     Dosage: 19TH INFUSION
     Route: 042
     Dates: start: 20130131
  3. PLAQUENIL [Concomitant]
     Route: 065
  4. METHOTREXATE [Concomitant]
     Route: 065
  5. FOLIC ACID [Concomitant]
     Route: 065
  6. METFORMIN [Concomitant]
     Route: 065
  7. PANTOLOC [Concomitant]
     Route: 065
  8. ATACAND [Concomitant]
     Route: 065
  9. RAMIPRIL [Concomitant]
     Route: 065
  10. METOPROLOL [Concomitant]
     Route: 065
  11. HYDROCHLOROTHIAZIDE [Concomitant]
     Route: 065
  12. ADVAIR [Concomitant]
     Route: 065
  13. ARTHROTEC [Concomitant]
     Route: 065
  14. HYDROXYCHLOROQUINE [Concomitant]
     Route: 065

REACTIONS (1)
  - Toothache [Unknown]
